FAERS Safety Report 9940301 (Version 1)
Quarter: 2014Q1

REPORT INFORMATION
  Report Type: Report from Study
  Country: US (occurrence: US)
  Receive Date: 20140303
  Receipt Date: 20140303
  Transmission Date: 20141002
  Serious: Yes (Other)
  Sender: FDA-Public Use
  Company Number: US-ABBVIE-13P-163-1035384-00

PATIENT
  Age: 55 Year
  Sex: Female
  Weight: 90.8 kg

DRUGS (12)
  1. HUMIRA [Suspect]
     Indication: PSORIATIC ARTHROPATHY
     Dates: start: 200801, end: 20120615
  2. HUMIRA [Suspect]
     Indication: PSORIASIS
  3. LEVOTHYROXINE [Concomitant]
     Indication: HYPOTHYROIDISM
  4. LIOTHYROXINE [Concomitant]
     Indication: HYPOTHYROIDISM
  5. BUPROPION [Concomitant]
     Indication: DEPRESSION
  6. ESTRADIOL [Concomitant]
     Indication: HORMONE REPLACEMENT THERAPY
  7. METHOTREXATE [Concomitant]
     Indication: PSORIATIC ARTHROPATHY
  8. FOLIC ACID [Concomitant]
     Indication: PRODUCT USED FOR UNKNOWN INDICATION
  9. RELAFEN [Concomitant]
     Indication: PSORIATIC ARTHROPATHY
  10. PROBIOTICS [Concomitant]
     Indication: SUPPLEMENTATION THERAPY
  11. VITAMIN B12 [Concomitant]
     Indication: VITAMIN SUPPLEMENTATION
  12. VITAMIN B [Concomitant]
     Indication: VITAMIN SUPPLEMENTATION

REACTIONS (10)
  - Osteomyelitis [Recovered/Resolved]
  - Paronychia [Recovered/Resolved]
  - Sinusitis [Recovered/Resolved]
  - Limb injury [Recovered/Resolved]
  - Foot fracture [Recovered/Resolved]
  - C-reactive protein increased [Unknown]
  - Arthritis [Not Recovered/Not Resolved]
  - Psoriasis [Not Recovered/Not Resolved]
  - Pain in extremity [Recovered/Resolved]
  - Paronychia drainage [Recovered/Resolved]
